FAERS Safety Report 10024552 (Version 1)
Quarter: 2014Q1

REPORT INFORMATION
  Report Type: Spontaneous
  Country: US (occurrence: US)
  Receive Date: 20140320
  Receipt Date: 20140320
  Transmission Date: 20141002
  Serious: Yes (Other)
  Sender: FDA-Public Use
  Company Number: US-ABBVIE-14P-163-1212804-00

PATIENT
  Age: 39 Year
  Sex: Female
  Weight: 63.56 kg

DRUGS (2)
  1. SYNTHROID [Suspect]
     Indication: HYPOTHYROIDISM
     Route: 048
     Dates: start: 201304
  2. SERTRALINE [Concomitant]
     Indication: DEPRESSION

REACTIONS (5)
  - Anaemia [Not Recovered/Not Resolved]
  - Gastrointestinal ulcer haemorrhage [Recovering/Resolving]
  - Meniscus injury [Not Recovered/Not Resolved]
  - Coeliac disease [Not Recovered/Not Resolved]
  - Coeliac disease [Not Recovered/Not Resolved]
